FAERS Safety Report 6889770-0 (Version None)
Quarter: 2010Q3

REPORT INFORMATION
  Report Type: 
  Country: None (occurrence: None)
  Receive Date: 20100730
  Receipt Date: 20080425
  Transmission Date: 20110219
  Serious: No
  Sender: FDA-Public Use
  Company Number: US-PFIZER INC-2008036492

PATIENT
  Sex: Female
  Weight: 55 kg

DRUGS (3)
  1. LIPITOR [Suspect]
  2. ATENOLOL [Concomitant]
  3. PREDNISONE [Concomitant]

REACTIONS (1)
  - PLATELET COUNT DECREASED [None]
